FAERS Safety Report 12876555 (Version 1)
Quarter: 2016Q4

REPORT INFORMATION
  Report Type: Spontaneous
  Country: US (occurrence: US)
  Receive Date: 20161021
  Receipt Date: 20161021
  Transmission Date: 20170207
  Serious: No
  Sender: FDA-Public Use
  Company Number: None

PATIENT
  Age: 34 Year
  Sex: Female
  Weight: 63 kg

DRUGS (1)
  1. 150MG BUPROPION HCL [Suspect]
     Active Substance: BUPROPION HYDROCHLORIDE
     Indication: DEPRESSION
     Dosage: ?          QUANTITY:1 CAPSULE(S);?
     Route: 048
     Dates: start: 20161019, end: 20161021

REACTIONS (2)
  - Eye pain [None]
  - Neck pain [None]

NARRATIVE: CASE EVENT DATE: 20161021
